FAERS Safety Report 10239034 (Version 1)
Quarter: 2014Q2

REPORT INFORMATION
  Report Type: Spontaneous
  Country: US (occurrence: None)
  Receive Date: 20140613
  Receipt Date: 20140613
  Transmission Date: 20141212
  Serious: Yes (Other)
  Sender: FDA-Public Use
  Company Number: None

PATIENT
  Age: 49 Year
  Sex: Female
  Weight: 77.11 kg

DRUGS (3)
  1. PROPOFOL [Suspect]
     Indication: ANAESTHESIA
     Route: 042
     Dates: start: 20070330, end: 20070330
  2. PROPOFOL [Suspect]
     Indication: COLONOSCOPY
     Route: 042
     Dates: start: 20070330, end: 20070330
  3. PROPOFOL [Suspect]
     Indication: ENDOSCOPY
     Route: 042
     Dates: start: 20070330, end: 20070330

REACTIONS (2)
  - Alopecia totalis [None]
  - Alopecia universalis [None]
